FAERS Safety Report 5554292-6 (Version None)
Quarter: 2007Q4

REPORT INFORMATION
  Report Type: 
  Country: None (occurrence: None)
  Receive Date: 20071213
  Receipt Date: 20071207
  Transmission Date: 20080405
  Serious: Yes (Hospitalization)
  Sender: FDA-Public Use
  Company Number: B0499451A

PATIENT
  Sex: Male

DRUGS (2)
  1. CEFUROXIME AXETIL [Suspect]
     Indication: INFLUENZA
     Route: 048
     Dates: start: 20071101, end: 20071101
  2. NISULID [Suspect]
     Indication: INFLUENZA
     Route: 048
     Dates: start: 20071101, end: 20071101

REACTIONS (5)
  - HYPERSENSITIVITY [None]
  - LEUKOCYTOSIS [None]
  - PERIORBITAL OEDEMA [None]
  - RASH PAPULAR [None]
  - RASH PRURITIC [None]
